FAERS Safety Report 23453876 (Version 3)
Quarter: 2024Q1

REPORT INFORMATION
  Report Type: Report from Study
  Country: US (occurrence: US)
  Receive Date: 20240129
  Receipt Date: 20240214
  Transmission Date: 20240410
  Serious: Yes (Other)
  Sender: FDA-Public Use
  Company Number: US-ABBVIE-5603335

PATIENT
  Age: 81 Year
  Sex: Male
  Weight: 113.39 kg

DRUGS (1)
  1. SKYRIZI [Suspect]
     Active Substance: RISANKIZUMAB-RZAA
     Indication: Product used for unknown indication
     Route: 058
     Dates: start: 20231020, end: 20231119

REACTIONS (2)
  - Femur fracture [Recovering/Resolving]
  - Limb asymmetry [Recovered/Resolved]

NARRATIVE: CASE EVENT DATE: 20231201
